FAERS Safety Report 12500981 (Version 1)
Quarter: 2016Q2

REPORT INFORMATION
  Report Type: Spontaneous
  Country: US (occurrence: US)
  Receive Date: 20160627
  Receipt Date: 20160627
  Transmission Date: 20160815
  Serious: No
  Sender: FDA-Public Use
  Company Number: US-BAUSCH-BL-2016-004172

PATIENT
  Sex: Female

DRUGS (2)
  1. SOLODYN [Suspect]
     Active Substance: MINOCYCLINE HYDROCHLORIDE
     Dosage: FOR 1 WEEK
     Route: 048
     Dates: start: 20160125
  2. SOLODYN [Suspect]
     Active Substance: MINOCYCLINE HYDROCHLORIDE
     Indication: ACNE
     Route: 048
     Dates: start: 201601, end: 2016

REACTIONS (4)
  - Anxiety [Unknown]
  - Depression [Unknown]
  - Aphthous ulcer [Unknown]
  - Crying [Unknown]

NARRATIVE: CASE EVENT DATE: 2016
